FAERS Safety Report 20701324 (Version 3)
Quarter: 2023Q2

REPORT INFORMATION
  Report Type: Spontaneous
  Country: US (occurrence: US)
  Receive Date: 20220412
  Receipt Date: 20230404
  Transmission Date: 20230722
  Serious: Yes (Other)
  Sender: FDA-Public Use
  Company Number: US-PFIZER INC-202200549882

PATIENT
  Age: 85 Year
  Sex: Male
  Weight: 108.86 kg

DRUGS (4)
  1. VYNDAMAX [Suspect]
     Active Substance: TAFAMIDIS
     Indication: Cardiac amyloidosis
     Dosage: 61 MG, DAILY
     Route: 048
     Dates: start: 2022
  2. VYNDAMAX [Suspect]
     Active Substance: TAFAMIDIS
     Indication: Cardiac failure
  3. ALLOPURINOL [Concomitant]
     Active Substance: ALLOPURINOL
     Indication: Renal failure
     Dosage: 100 MG, 1X/DAY
     Dates: start: 202203
  4. WARFARIN [Concomitant]
     Active Substance: WARFARIN
     Dosage: UNK

REACTIONS (2)
  - Renal failure [Unknown]
  - Dehydration [Unknown]

NARRATIVE: CASE EVENT DATE: 20220301
